FAERS Safety Report 9318893 (Version 1)
Quarter: 2013Q2

REPORT INFORMATION
  Report Type: Spontaneous
  Country: IT (occurrence: None)
  Receive Date: 20130520
  Receipt Date: 20130520
  Transmission Date: 20140414
  Serious: Yes (Other)
  Sender: FDA-Public Use
  Company Number: 2013036077

PATIENT
  Age: 46 Year
  Sex: Male

DRUGS (1)
  1. IVIG (IMMUNE GLOBULIN INTRAVENOUS (HUMAN) 10% LIQUID) [Suspect]
     Indication: GUILLAIN-BARRE SYNDROME
     Route: 042

REACTIONS (2)
  - Drug ineffective [None]
  - Ischaemic stroke [None]
